FAERS Safety Report 22626274 (Version 1)
Quarter: 2023Q2

REPORT INFORMATION
  Report Type: Other
  Country: IN (occurrence: None)
  Receive Date: 20230621
  Receipt Date: 20230621
  Transmission Date: 20230721
  Serious: Yes (Other)
  Sender: FDA-Public Use
  Company Number: IN-ROCHE-3371039

PATIENT
  Age: 70 Year
  Sex: Male

DRUGS (1)
  1. TECENTRIQ [Suspect]
     Active Substance: ATEZOLIZUMAB
     Indication: Hepatocellular carcinoma
     Route: 041
     Dates: start: 20230518

REACTIONS (1)
  - Hepatitis B DNA increased [Unknown]
